FAERS Safety Report 13210813 (Version 3)
Quarter: 2017Q2

REPORT INFORMATION
  Report Type: Spontaneous
  Country: US (occurrence: US)
  Receive Date: 20170210
  Receipt Date: 20170418
  Transmission Date: 20170830
  Serious: Yes (Hospitalization, Other)
  Sender: FDA-Public Use
  Company Number: US-ASTRAZENECA-2017SE13538

PATIENT
  Age: 48 Year
  Sex: Male

DRUGS (1)
  1. BYDUREON [Suspect]
     Active Substance: EXENATIDE
     Indication: TYPE 2 DIABETES MELLITUS
     Route: 065
     Dates: start: 201701, end: 20170202

REACTIONS (5)
  - Stevens-Johnson syndrome [Unknown]
  - Skin exfoliation [Not Recovered/Not Resolved]
  - Hypersensitivity [Unknown]
  - Onychomadesis [Not Recovered/Not Resolved]
  - Extremity necrosis [Unknown]

NARRATIVE: CASE EVENT DATE: 201701
